FAERS Safety Report 23801628 (Version 2)
Quarter: 2024Q2

REPORT INFORMATION
  Report Type: Report from Study
  Country: US (occurrence: US)
  Receive Date: 20240430
  Receipt Date: 20240521
  Transmission Date: 20240716
  Serious: Yes (Other)
  Sender: FDA-Public Use
  Company Number: US-ABBVIE-5738751

PATIENT
  Sex: Female

DRUGS (1)
  1. SKYRIZI [Suspect]
     Active Substance: RISANKIZUMAB-RZAA
     Indication: Psoriasis
     Route: 058
     Dates: start: 20210521

REACTIONS (6)
  - Cardiac pacemaker insertion [Recovering/Resolving]
  - Pulmonary mass [Not Recovered/Not Resolved]
  - Atrial fibrillation [Recovering/Resolving]
  - Asthenia [Not Recovered/Not Resolved]
  - Hepatic lesion [Not Recovered/Not Resolved]
  - Renal disorder [Not Recovered/Not Resolved]
